FAERS Safety Report 7932346-4 (Version None)
Quarter: 2011Q4

REPORT INFORMATION
  Report Type: 
  Country: None (occurrence: None)
  Receive Date: 20111121
  Receipt Date: 20111111
  Transmission Date: 20120403
  Serious: Yes (Other)
  Sender: FDA-Public Use
  Company Number: GR-AMGEN-GRCSP2011059210

PATIENT
  Sex: Female

DRUGS (2)
  1. PROLIA [Suspect]
     Indication: OSTEOPOROSIS POSTMENOPAUSAL
     Dosage: UNK
     Dates: start: 20110401
  2. ONEALPHA [Concomitant]
     Dosage: UNK
     Dates: start: 20110401

REACTIONS (2)
  - RETINAL DETACHMENT [None]
  - CHOLECYSTECTOMY [None]
